FAERS Safety Report 5746349-1 (Version None)
Quarter: 2008Q2

REPORT INFORMATION
  Report Type: 
  Country: None (occurrence: None)
  Receive Date: 20080522
  Receipt Date: 20080516
  Transmission Date: 20081010
  Serious: Yes (Other)
  Sender: FDA-Public Use
  Company Number: PHFR2008GB01301

PATIENT
  Age: 38 Year
  Sex: Male

DRUGS (6)
  1. PAROXETINE HCL [Concomitant]
     Indication: DEPRESSION
     Dosage: 20MG / DAY
     Route: 048
     Dates: start: 20060101
  2. OMEGA-3 ACID ETHYL ESTERS [Concomitant]
     Route: 048
     Dates: start: 20060101
  3. TETRABENAZINE [Concomitant]
     Indication: MOVEMENT DISORDER
     Dosage: 12.5 MG, BID
     Route: 048
  4. CLONAZEPAM [Concomitant]
     Dosage: 10 MG, BID
     Route: 048
  5. HYOSCINE HBR HYT [Concomitant]
     Indication: SALIVARY HYPERSECRETION
     Dosage: 300 UG, BID
     Route: 048
  6. CLOZARIL [Suspect]
     Indication: SCHIZOPHRENIA
     Dosage: 500MG/DAY
     Dates: start: 19960603

REACTIONS (4)
  - ELECTROCARDIOGRAM ABNORMAL [None]
  - LEFT VENTRICULAR DYSFUNCTION [None]
  - MYOCARDIAL ISCHAEMIA [None]
  - SINUS TACHYCARDIA [None]
